FAERS Safety Report 22093313 (Version 1)
Quarter: 2023Q1

REPORT INFORMATION
  Report Type: Spontaneous
  Country: FR (occurrence: FR)
  Receive Date: 20230314
  Receipt Date: 20230314
  Transmission Date: 20230418
  Serious: Yes (Hospitalization)
  Sender: FDA-Public Use
  Company Number: None

PATIENT
  Age: 47 Year
  Sex: Male

DRUGS (2)
  1. ACETAMINOPHEN [Suspect]
     Active Substance: ACETAMINOPHEN
     Indication: Dental operation
     Dosage: 1 DOSAGE FORM
     Route: 048
     Dates: start: 20230113, end: 20230113
  2. CODEINE [Suspect]
     Active Substance: CODEINE
     Indication: Dental operation
     Dosage: 1 DOSAGE FORM
     Route: 048
     Dates: start: 20230113, end: 20230113

REACTIONS (1)
  - Abdominal pain [Recovered/Resolved]

NARRATIVE: CASE EVENT DATE: 20230113
